FAERS Safety Report 8405707-7 (Version None)
Quarter: 2012Q2

REPORT INFORMATION
  Report Type: 
  Country: None (occurrence: None)
  Receive Date: 20120604
  Receipt Date: 20120502
  Transmission Date: 20120825
  Serious: Yes (Hospitalization)
  Sender: FDA-Public Use
  Company Number: KR-BRISTOL-MYERS SQUIBB COMPANY-16544488

PATIENT
  Age: 74 Year
  Sex: Male

DRUGS (5)
  1. FOLIC ACID [Concomitant]
  2. METFORMIN HCL [Suspect]
     Indication: TYPE 2 DIABETES MELLITUS
  3. THIAZIDE [Concomitant]
  4. PROPRANOLOL HYDROCHLORIDE [Concomitant]
  5. GLIMEPIRIDE [Concomitant]

REACTIONS (2)
  - RENAL FAILURE ACUTE [None]
  - LACTIC ACIDOSIS [None]
